FAERS Safety Report 4668678-5 (Version None)
Quarter: 2005Q2

REPORT INFORMATION
  Report Type: 
  Country: None (occurrence: None)
  Receive Date: 20050523
  Receipt Date: 20041115
  Transmission Date: 20051028
  Serious: Yes (Other)
  Sender: FDA-Public Use
  Company Number: PHEH2004US12402

PATIENT
  Age: 61 Year
  Sex: Female

DRUGS (4)
  1. ZOLEDRONATE [Suspect]
     Indication: METASTASES TO BONE
     Dosage: 4 MG, QMO
     Dates: start: 20020405, end: 20040602
  2. XELODA [Concomitant]
     Dosage: 1000 MG, BID
     Route: 048
     Dates: start: 20040109
  3. AROMASIN [Concomitant]
     Dates: start: 20020228, end: 20030826
  4. FASLODEX [Concomitant]
     Dosage: 250 MG, QMO
     Dates: start: 20030826, end: 20040109

REACTIONS (5)
  - BONE DEBRIDEMENT [None]
  - OSTECTOMY [None]
  - OSTEOMYELITIS [None]
  - OSTEONECROSIS [None]
  - TOOTH EXTRACTION [None]
